FAERS Safety Report 4534075-6 (Version None)
Quarter: 2004Q4

REPORT INFORMATION
  Report Type: 
  Country: None (occurrence: None)
  Receive Date: 20041221
  Receipt Date: 20041221
  Transmission Date: 20050328
  Serious: Yes (Other)
  Sender: FDA-Public Use
  Company Number: None

PATIENT
  Age: 77 Year
  Sex: Male
  Weight: 74.4 kg

DRUGS (7)
  1. MELOXICAM [Suspect]
  2. OXYCODONE 5MG/ACETAMINOPHEN 325MG [Concomitant]
  3. ALBUTEROL [Concomitant]
  4. LISINOPRIL [Concomitant]
  5. LANOXIN [Concomitant]
  6. ACETAMINOPHEN [Concomitant]
  7. RANITIDINE HCL [Concomitant]

REACTIONS (1)
  - CONFUSIONAL STATE [None]
